FAERS Safety Report 8153314-6 (Version None)
Quarter: 2012Q1

REPORT INFORMATION
  Report Type: 
  Country: None (occurrence: None)
  Receive Date: 20120103
  Receipt Date: 20111031
  Transmission Date: 20120608
  Serious: No
  Sender: FDA-Public Use
  Company Number: AE-2011-002892

PATIENT
  Age: 62 Year
  Sex: Female
  Weight: 61.2356 kg

DRUGS (6)
  1. RIBAVIRIN [Concomitant]
  2. IMITREX [Concomitant]
  3. CLIMARA [Concomitant]
  4. ENABLEX [Concomitant]
  5. INCIVEK [Suspect]
     Dosage: 2250 MG (750 MG,1 IN 8 HR),ORAL
     Route: 048
     Dates: start: 20110915
  6. PEGASYS [Concomitant]

REACTIONS (6)
  - ANORECTAL DISCOMFORT [None]
  - PRURITUS [None]
  - DYSGEUSIA [None]
  - CONSTIPATION [None]
  - RASH GENERALISED [None]
  - NAUSEA [None]
